FAERS Safety Report 24717722 (Version 1)
Quarter: 2024Q4

REPORT INFORMATION
  Report Type: Spontaneous
  Country: GR (occurrence: GR)
  Receive Date: 20241210
  Receipt Date: 20241210
  Transmission Date: 20250115
  Serious: Yes (Other)
  Sender: ROVIPHARM SAS
  Company Number: GR-VIANEX-003615

PATIENT
  Sex: Male

DRUGS (1)
  1. RISPERIDONE [Suspect]
     Active Substance: RISPERIDONE
     Indication: Schizophrenia
     Dosage: FORM OF ADMIN - POWDER AND SOLVENT FOR PROLONGED-RELEASE SUSPENSION FOR INJECTION
     Dates: start: 202408

REACTIONS (1)
  - Schizophrenia [Recovered/Resolved]
